FAERS Safety Report 6795761-0 (Version None)
Quarter: 2010Q2

REPORT INFORMATION
  Report Type: 
  Country: None (occurrence: None)
  Receive Date: 20100625
  Receipt Date: 20100615
  Transmission Date: 20101027
  Serious: Yes (Hospitalization)
  Sender: FDA-Public Use
  Company Number: US-WYE-H15675210

PATIENT
  Sex: Female

DRUGS (11)
  1. PROTONIX [Suspect]
     Indication: GASTROOESOPHAGEAL REFLUX DISEASE
     Route: 048
     Dates: start: 20100201
  2. PROTONIX [Suspect]
     Indication: GASTRITIS
  3. PLAVIX [Suspect]
     Dosage: UNKNOWN
  4. HUMALOG [Suspect]
     Dosage: 72/25 UNKNOWN FREQUENCY
  5. SEVELAMER [Suspect]
     Dosage: UNKNOWN
  6. CALCIUM ACETATE [Suspect]
     Dosage: UNKNOWN
  7. LEVOTHYROXINE SODIUM [Suspect]
     Dosage: UNKNOWN
  8. LIDOCAINE [Suspect]
     Dosage: UNKNOWN
  9. PRILOCAINE HYDROCHLORIDE [Suspect]
     Dosage: UNKNOWN
  10. LYRICA [Suspect]
     Route: 048
  11. DOXEPIN HCL [Suspect]

REACTIONS (2)
  - GASTRIC ULCER [None]
  - GASTRIC ULCER HAEMORRHAGE [None]
